FAERS Safety Report 6067375-1 (Version None)
Quarter: 2009Q1

REPORT INFORMATION
  Report Type: 
  Country: None (occurrence: None)
  Receive Date: 20090205
  Receipt Date: 20090126
  Transmission Date: 20090719
  Serious: Yes (Death, Life-Threatening)
  Sender: FDA-Public Use
  Company Number: JP-JNJFOC-20080901134

PATIENT
  Sex: Female
  Weight: 46 kg

DRUGS (6)
  1. REMICADE [Suspect]
     Route: 042
  2. REMICADE [Suspect]
     Indication: RHEUMATOID ARTHRITIS
     Route: 042
  3. RHEUMATREX [Suspect]
     Indication: RHEUMATOID ARTHRITIS
     Route: 048
  4. FOLIAMIN [Concomitant]
     Indication: FOLATE DEFICIENCY
     Route: 048
  5. MUCOSTA [Concomitant]
     Indication: GASTRITIS
     Route: 048
  6. INFREE [Concomitant]
     Indication: RHEUMATOID ARTHRITIS
     Route: 048

REACTIONS (2)
  - ACUTE INTERSTITIAL PNEUMONITIS [None]
  - INTERSTITIAL LUNG DISEASE [None]
